FAERS Safety Report 5587282-8 (Version None)
Quarter: 2008Q1

REPORT INFORMATION
  Report Type: 
  Country: None (occurrence: None)
  Receive Date: 20080110
  Receipt Date: 20080104
  Transmission Date: 20080703
  Serious: Yes (Other)
  Sender: FDA-Public Use
  Company Number: US-PFIZER INC-2008001352

PATIENT
  Sex: Male
  Weight: 79.545 kg

DRUGS (4)
  1. LIPITOR [Suspect]
     Route: 048
  2. TOPROL-XL [Concomitant]
     Indication: CARDIAC DISORDER
  3. ACETYLSALICYLIC ACID SRT [Concomitant]
     Indication: CARDIAC DISORDER
  4. LISINOPRIL [Concomitant]
     Indication: RENAL DISORDER

REACTIONS (1)
  - TYPE 2 DIABETES MELLITUS [None]
